FAERS Safety Report 6120233-6 (Version None)
Quarter: 2009Q1

REPORT INFORMATION
  Report Type: 
  Country: None (occurrence: None)
  Receive Date: 20090312
  Receipt Date: 20090303
  Transmission Date: 20090719
  Serious: Yes (Hospitalization)
  Sender: FDA-Public Use
  Company Number: CERZ-1000542

PATIENT
  Age: 27 Year
  Sex: Male
  Weight: 72.6 kg

DRUGS (1)
  1. CEREZYME [Suspect]
     Indication: GAUCHER'S DISEASE
     Dosage: 1600 U, Q2W, INTRAVENOUS
     Route: 042
     Dates: start: 20040405

REACTIONS (6)
  - BLINDNESS TRANSIENT [None]
  - INJECTION SITE SWELLING [None]
  - NAUSEA [None]
  - PAIN [None]
  - TRANSIENT ISCHAEMIC ATTACK [None]
  - VOMITING [None]
